FAERS Safety Report 4446105-0 (Version None)
Quarter: 2004Q3

REPORT INFORMATION
  Report Type: 
  Country: None (occurrence: None)
  Receive Date: 20040910
  Receipt Date: 20040901
  Transmission Date: 20050211
  Serious: Yes (Other)
  Sender: FDA-Public Use
  Company Number: US-AMGEN-US089281

PATIENT
  Age: 43 Year
  Sex: Male

DRUGS (9)
  1. ARANESP [Suspect]
     Indication: ANAEMIA OF MALIGNANT DISEASE
     Route: 058
     Dates: start: 20040820, end: 20040820
  2. PAXIL [Concomitant]
     Dates: start: 20040701
  3. TAXOTERE [Concomitant]
     Dates: start: 20040701
  4. GEMZAR [Concomitant]
     Dates: start: 20040701
  5. EMEND [Concomitant]
  6. DECADRON [Concomitant]
  7. EMLA [Concomitant]
  8. XANAX [Concomitant]
  9. MULTI-VITAMINS [Concomitant]

REACTIONS (8)
  - ANAPHYLACTOID REACTION [None]
  - ANGIONEUROTIC OEDEMA [None]
  - EPISTAXIS [None]
  - HYPOTENSION [None]
  - INJECTION SITE PAIN [None]
  - SWOLLEN TONGUE [None]
  - SYNCOPE [None]
  - URTICARIA [None]
